FAERS Safety Report 19704924 (Version 1)
Quarter: 2021Q3

REPORT INFORMATION
  Report Type: Report from Study
  Country: US (occurrence: US)
  Receive Date: 20210816
  Receipt Date: 20210816
  Transmission Date: 20211014
  Serious: Yes (Other)
  Sender: FDA-Public Use
  Company Number: US-TAKEDA-US202011323

PATIENT
  Age: 47 Year
  Sex: Male

DRUGS (1)
  1. HUMAN NORMAL IMMUNOGLOBULIN; LIQUID [Suspect]
     Active Substance: HUMAN IMMUNOGLOBULIN G
     Indication: PRIMARY IMMUNODEFICIENCY SYNDROME
     Dosage: 40 GRAM
     Route: 042

REACTIONS (6)
  - Pneumonia [Unknown]
  - Lymphoma [Unknown]
  - Insurance issue [Unknown]
  - Cyst [Unknown]
  - Therapy interrupted [Unknown]
  - Folliculitis [Unknown]

NARRATIVE: CASE EVENT DATE: 20200324
